FAERS Safety Report 17202646 (Version 1)
Quarter: 2019Q4

REPORT INFORMATION
  Report Type: Spontaneous
  Country: US (occurrence: US)
  Receive Date: 20191226
  Receipt Date: 20191226
  Transmission Date: 20200122
  Serious: Yes (Death, Hospitalization, Other)
  Sender: FDA-Public Use
  Company Number: US-SHIRE-US201943645

PATIENT
  Sex: Male

DRUGS (1)
  1. OBIZUR [Suspect]
     Active Substance: ANTIHEMOPHILIC FACTOR PORCINE, B-DOMAIN TRUNCATED RECOMBINANT
     Indication: ACQUIRED HAEMOPHILIA
     Dosage: UNK UNK, 1X/DAY:QD
     Route: 065

REACTIONS (7)
  - Gingival bleeding [Unknown]
  - Oral contusion [Unknown]
  - Dysgeusia [Unknown]
  - Fall [Unknown]
  - Haemorrhage [Unknown]
  - Death [Fatal]
  - Pharyngeal haemorrhage [Unknown]
